FAERS Safety Report 9917600 (Version 1)
Quarter: 2014Q1

REPORT INFORMATION
  Report Type: Spontaneous
  Country: IN (occurrence: IN)
  Receive Date: 20140221
  Receipt Date: 20140221
  Transmission Date: 20141002
  Serious: Yes (Other)
  Sender: FDA-Public Use
  Company Number: IN-MERCK-1402IND009866

PATIENT
  Age: 75 Year
  Sex: Male

DRUGS (2)
  1. JANUVIA [Suspect]
     Indication: DIABETES MELLITUS
     Dosage: UNK, BID
     Route: 048
     Dates: start: 2012
  2. UNIVIA N [Concomitant]
     Indication: DIABETES MELLITUS
     Dosage: UNK, QD

REACTIONS (1)
  - Pharyngitis [Not Recovered/Not Resolved]
